FAERS Safety Report 10684462 (Version 30)
Quarter: 2024Q2

REPORT INFORMATION
  Report Type: Report from Study
  Country: CA (occurrence: CA)
  Receive Date: 20141231
  Receipt Date: 20240610
  Transmission Date: 20240716
  Serious: Yes (Hospitalization, Other)
  Sender: FDA-Public Use
  Company Number: PHHY2013CA109032

PATIENT
  Age: 34 Year
  Sex: Female

DRUGS (15)
  1. SANDOSTATIN LAR DEPOT [Suspect]
     Active Substance: OCTREOTIDE ACETATE
     Indication: Gastrinoma malignant
     Dosage: 40 MG, QMO
     Route: 030
     Dates: start: 20130623
  2. SANDOSTATIN LAR DEPOT [Suspect]
     Active Substance: OCTREOTIDE ACETATE
     Dosage: 40 MG, QMO
     Route: 030
     Dates: start: 20140408, end: 20150316
  3. SANDOSTATIN LAR DEPOT [Suspect]
     Active Substance: OCTREOTIDE ACETATE
     Dosage: 40 MG, Q4W
     Route: 030
     Dates: start: 20150512, end: 2015
  4. SANDOSTATIN LAR DEPOT [Suspect]
     Active Substance: OCTREOTIDE ACETATE
     Dosage: 40 MG, QMO
     Route: 030
     Dates: start: 20151110
  5. SANDOSTATIN LAR DEPOT [Suspect]
     Active Substance: OCTREOTIDE ACETATE
     Dosage: 40 MG, QMO
     Route: 030
     Dates: start: 20200513
  6. SANDOSTATIN [Suspect]
     Active Substance: OCTREOTIDE ACETATE
     Indication: Gastrinoma malignant
     Dosage: UNK UNK, ONCE/SINGLE
     Route: 058
     Dates: start: 20130607, end: 20130607
  7. SANDOSTATIN [Suspect]
     Active Substance: OCTREOTIDE ACETATE
  8. SANDOSTATIN [Suspect]
     Active Substance: OCTREOTIDE ACETATE
  9. MEFENAMIC ACID [Concomitant]
     Active Substance: MEFENAMIC ACID
     Indication: Product used for unknown indication
     Dosage: 25 MG, TID
     Route: 065
     Dates: start: 20140523
  10. RAMIPRIL [Concomitant]
     Active Substance: RAMIPRIL
     Indication: Product used for unknown indication
     Dosage: UNK
     Route: 048
  11. HYDROCORTISONE [Concomitant]
     Active Substance: HYDROCORTISONE
     Indication: Product used for unknown indication
     Dosage: 20 MG (15 MG MORNING, 5 MG BEDTIME)
     Route: 065
     Dates: start: 20140618
  12. HYDROCORTISONE [Concomitant]
     Active Substance: HYDROCORTISONE
     Dosage: 15 MG (10 MG EVERY MORNING AND 5 MG EVERY EVENING)
     Route: 065
     Dates: start: 20150113
  13. METFORMIN [Concomitant]
     Active Substance: METFORMIN HYDROCHLORIDE
     Indication: Product used for unknown indication
     Dosage: 500 MG, BID
     Route: 065
  14. METFORMIN [Concomitant]
     Active Substance: METFORMIN HYDROCHLORIDE
     Dosage: 1000 MG, BID
     Route: 065
  15. METFORMIN [Concomitant]
     Active Substance: METFORMIN HYDROCHLORIDE
     Dosage: REDUCED DOSE
     Route: 048

REACTIONS (43)
  - Pyelonephritis [Unknown]
  - White blood cell count increased [Unknown]
  - Acute kidney injury [Unknown]
  - Breast mass [Unknown]
  - Nephrolithiasis [Unknown]
  - Subcutaneous abscess [Unknown]
  - Blood glucose increased [Unknown]
  - Abscess limb [Unknown]
  - Fungal infection [Recovered/Resolved]
  - Pharyngitis [Unknown]
  - Arthralgia [Not Recovered/Not Resolved]
  - Lethargy [Unknown]
  - Nasal congestion [Unknown]
  - Mouth breathing [Unknown]
  - Pyrexia [Recovered/Resolved]
  - Cough [Recovered/Resolved]
  - Arthropod bite [Unknown]
  - Erythema [Unknown]
  - Skin burning sensation [Unknown]
  - Weight bearing difficulty [Unknown]
  - Malaise [Recovered/Resolved]
  - Blood pressure diastolic decreased [Unknown]
  - Blood calcium increased [Not Recovered/Not Resolved]
  - Rash papular [Unknown]
  - Anxiety [Unknown]
  - Influenza [Recovered/Resolved]
  - Illness [Recovered/Resolved]
  - Oropharyngeal pain [Recovered/Resolved]
  - Diarrhoea [Not Recovered/Not Resolved]
  - Constipation [Not Recovered/Not Resolved]
  - Nausea [Unknown]
  - Vomiting [Unknown]
  - Fatigue [Unknown]
  - Asthenia [Recovered/Resolved]
  - Abdominal pain upper [Unknown]
  - Abdominal pain [Unknown]
  - Headache [Unknown]
  - Decreased appetite [Unknown]
  - Pruritus [Unknown]
  - Blood glucose decreased [Unknown]
  - Injection site pain [Unknown]
  - Pain [Unknown]
  - Injection site haemorrhage [Recovered/Resolved]

NARRATIVE: CASE EVENT DATE: 20140101
